FAERS Safety Report 7338767-5 (Version None)
Quarter: 2011Q1

REPORT INFORMATION
  Report Type: 
  Country: None (occurrence: None)
  Receive Date: 20110308
  Receipt Date: 20110223
  Transmission Date: 20110831
  Serious: Yes (Other)
  Sender: FDA-Public Use
  Company Number: PHHY2011BR14678

PATIENT
  Sex: Male

DRUGS (5)
  1. SERTRALINE [Concomitant]
     Dosage: 50 MG, UNK
     Route: 048
  2. ACETYLCYSTEINE [Concomitant]
  3. FORASEQ [Suspect]
     Indication: EMPHYSEMA
     Dosage: 1 DF, BID
  4. METICORTEN [Concomitant]
     Dosage: 05 MG, UNK
     Route: 048
  5. TRAZODONE HYDROCHLORIDE [Concomitant]
     Dosage: 50 MG, UNK
     Route: 048

REACTIONS (2)
  - CATARACT [None]
  - PNEUMONIA [None]
